FAERS Safety Report 11971046 (Version 1)
Quarter: 2016Q1

REPORT INFORMATION
  Report Type: Spontaneous
  Country: US (occurrence: None)
  Receive Date: 20160127
  Receipt Date: 20160127
  Transmission Date: 20160526
  Serious: No
  Sender: FDA-Public Use
  Company Number: None

PATIENT
  Sex: Female

DRUGS (1)
  1. GLYBURIDE/METFORMIN [Suspect]
     Active Substance: GLYBURIDE\METFORMIN
     Route: 048

REACTIONS (2)
  - Blood glucose increased [None]
  - Product substitution issue [None]
